FAERS Safety Report 7386050-4 (Version None)
Quarter: 2011Q1

REPORT INFORMATION
  Report Type: 
  Country: None (occurrence: None)
  Receive Date: 20110331
  Receipt Date: 20110321
  Transmission Date: 20110831
  Serious: Yes (Hospitalization)
  Sender: FDA-Public Use
  Company Number: US-JNJFOC-20110309107

PATIENT
  Sex: Female

DRUGS (9)
  1. INVEGA SUSTENNA [Suspect]
     Indication: BIPOLAR DISORDER
     Route: 030
  2. LAMICTAL [Concomitant]
  3. PREMARIN [Concomitant]
  4. ASTELIN [Concomitant]
     Dosage: 1 SPRAY AS NEEDED
  5. INVEGA SUSTENNA [Suspect]
     Route: 030
  6. INVEGA SUSTENNA [Suspect]
     Indication: PSYCHOTIC DISORDER
     Route: 030
  7. ALLEGRA [Concomitant]
  8. INVEGA SUSTENNA [Suspect]
     Route: 030
  9. LAMISIL [Concomitant]

REACTIONS (5)
  - ABNORMAL BEHAVIOUR [None]
  - INTESTINAL RESECTION [None]
  - CONSTIPATION [None]
  - FLAT AFFECT [None]
  - PRODUCT QUALITY ISSUE [None]
